FAERS Safety Report 21744759 (Version 2)
Quarter: 2022Q4

REPORT INFORMATION
  Report Type: Report from Study
  Country: US (occurrence: US)
  Receive Date: 20221219
  Receipt Date: 20221221
  Transmission Date: 20230113
  Serious: Yes (Other)
  Sender: FDA-Public Use
  Company Number: US-ABBVIE-4240635

PATIENT
  Sex: Female

DRUGS (3)
  1. HUMIRA [Suspect]
     Active Substance: ADALIMUMAB
     Indication: Product used for unknown indication
     Route: 058
  2. HUMIRA [Suspect]
     Active Substance: ADALIMUMAB
     Route: 058
  3. CORTISONE [Suspect]
     Active Substance: CORTISONE
     Indication: Product used for unknown indication
     Route: 065

REACTIONS (8)
  - Colitis [Unknown]
  - Drug ineffective [Recovered/Resolved]
  - Pathogen resistance [Recovered/Resolved]
  - Colitis ulcerative [Unknown]
  - Inflammation [Recovered/Resolved]
  - Drug ineffective [Recovered/Resolved]
  - Unevaluable event [Unknown]
  - Carditis [Unknown]

NARRATIVE: CASE EVENT DATE: 20150101
